FAERS Safety Report 6123755-7 (Version None)
Quarter: 2009Q1

REPORT INFORMATION
  Report Type: 
  Country: None (occurrence: None)
  Receive Date: 20090317
  Receipt Date: 20090311
  Transmission Date: 20090719
  Serious: Yes (Death)
  Sender: FDA-Public Use
  Company Number: 2009-190744-NL

PATIENT
  Age: 80 Year
  Sex: Male

DRUGS (7)
  1. MIRTAZAPINE [Suspect]
     Dosage: 30 MG QD/45 MG QD ORAL
     Route: 048
     Dates: start: 20081001, end: 20081208
  2. MIRTAZAPINE [Suspect]
     Dosage: 30 MG QD/45 MG QD ORAL
     Route: 048
     Dates: start: 20081209, end: 20081222
  3. CYMBALTA [Suspect]
     Dosage: ORAL
     Route: 048
     Dates: start: 20081001, end: 20081222
  4. ENALAPRIL MALEATE [Suspect]
     Dosage: ORAL
     Route: 048
     Dates: end: 20081222
  5. ASPIRIN [Suspect]
     Dosage: ORAL
     Route: 048
     Dates: end: 20081222
  6. LORAZEPAM [Suspect]
     Dosage: ORAL
     Route: 048
     Dates: start: 20081001, end: 20081208
  7. LORAZEPAM [Suspect]
     Dosage: ORAL
     Route: 048
     Dates: start: 20081209, end: 20081222

REACTIONS (1)
  - COMPLETED SUICIDE [None]
